FAERS Safety Report 14425659 (Version 4)
Quarter: 2018Q1

REPORT INFORMATION
  Report Type: Spontaneous
  Country: IT (occurrence: IT)
  Receive Date: 20180123
  Receipt Date: 20180209
  Transmission Date: 20180509
  Serious: Yes (Other)
  Sender: FDA-Public Use
  Company Number: IT-JNJFOC-20180126921

PATIENT
  Age: 66 Year
  Sex: Male

DRUGS (1)
  1. SIMPONI [Suspect]
     Active Substance: GOLIMUMAB
     Indication: SPONDYLITIS
     Route: 058
     Dates: start: 20170901, end: 20170927

REACTIONS (3)
  - Periodontitis [Unknown]
  - Diverticulitis [Unknown]
  - Colitis [Unknown]

NARRATIVE: CASE EVENT DATE: 20170927
